FAERS Safety Report 22087898 (Version 1)
Quarter: 2023Q1

REPORT INFORMATION
  Report Type: Spontaneous
  Country: GB (occurrence: None)
  Receive Date: 20230313
  Receipt Date: 20230313
  Transmission Date: 20230417
  Serious: Yes (Other)
  Sender: FDA-Public Use
  Company Number: None

PATIENT
  Age: 71 Year
  Sex: Female

DRUGS (9)
  1. OMEPRAZOLE [Suspect]
     Active Substance: OMEPRAZOLE
     Dosage: 20MG ONCE A DAY; ;
     Dates: start: 20210103, end: 20230224
  2. ATORVASTATIN [Concomitant]
     Active Substance: ATORVASTATIN
     Dosage: NA
  3. BISOPROLOL [Concomitant]
     Active Substance: BISOPROLOL
     Dosage: NA
  4. CETIRIZINE [Concomitant]
     Active Substance: CETIRIZINE HYDROCHLORIDE
     Dosage: NA
  5. COCODAMOL [Concomitant]
     Active Substance: ACETAMINOPHEN\CODEINE PHOSPHATE
     Dosage: NA
  6. LETROZOLE [Concomitant]
     Active Substance: LETROZOLE
     Dosage: NA
  7. OXYBUTYNIN [Concomitant]
     Active Substance: OXYBUTYNIN
     Dosage: NA
  8. QUININE [Concomitant]
     Active Substance: QUININE
     Dosage: NA
  9. RAMIPRIL [Concomitant]
     Active Substance: RAMIPRIL
     Dosage: NA

REACTIONS (3)
  - Hypomagnesaemia [Unknown]
  - Diarrhoea [Unknown]
  - Hypocalcaemia [Unknown]
